FAERS Safety Report 6249519-1 (Version None)
Quarter: 2009Q2

REPORT INFORMATION
  Report Type: 
  Country: None (occurrence: None)
  Receive Date: 20090629
  Receipt Date: 20090622
  Transmission Date: 20091009
  Serious: Yes (Death, Hospitalization)
  Sender: FDA-Public Use
  Company Number: B0580903A

PATIENT
  Sex: Male

DRUGS (1)
  1. ZINACEF [Suspect]
     Indication: PNEUMONIA
     Route: 065
     Dates: start: 20090501

REACTIONS (2)
  - BACTERIAL DIARRHOEA [None]
  - DEATH [None]
